FAERS Safety Report 15645322 (Version 5)
Quarter: 2019Q2

REPORT INFORMATION
  Report Type: Spontaneous
  Country: US (occurrence: US)
  Receive Date: 20181121
  Receipt Date: 20190426
  Transmission Date: 20190711
  Serious: Yes (Hospitalization, Other)
  Sender: FDA-Public Use
  Company Number: US-PFIZER INC-2018474107

PATIENT
  Age: 66 Year
  Sex: Female
  Weight: 95 kg

DRUGS (7)
  1. HYDROCODONE [Concomitant]
     Active Substance: HYDROCODONE
     Dosage: ^750.325^ EVERY 6 HRS
  2. LYRICA [Suspect]
     Active Substance: PREGABALIN
     Indication: BURNING SENSATION
  3. LYRICA [Suspect]
     Active Substance: PREGABALIN
     Indication: ARTHRITIS
     Dosage: 150 MG, 2X/DAY
     Route: 048
  4. LYRICA [Suspect]
     Active Substance: PREGABALIN
     Indication: BACK PAIN
     Dosage: 300 MG, UNK
  5. LYRICA [Suspect]
     Active Substance: PREGABALIN
     Indication: MYALGIA
     Dosage: 300 MG, 1X/DAY
     Route: 048
  6. LYRICA [Suspect]
     Active Substance: PREGABALIN
     Indication: FIBROMYALGIA
     Dosage: 75 MG, UNK
     Dates: start: 201601
  7. BACLOFEN. [Concomitant]
     Active Substance: BACLOFEN
     Dosage: 25 MG, 3X/DAY

REACTIONS (10)
  - Fall [Recovered/Resolved with Sequelae]
  - Diabetes mellitus [Unknown]
  - Pain [Not Recovered/Not Resolved]
  - Weight increased [Unknown]
  - Vision blurred [Unknown]
  - Off label use [Unknown]
  - Thyroid cyst [Unknown]
  - Renal cyst [Recovered/Resolved]
  - Ankle fracture [Recovered/Resolved with Sequelae]
  - Joint dislocation [Recovered/Resolved with Sequelae]

NARRATIVE: CASE EVENT DATE: 201601
